FAERS Safety Report 6367943-3 (Version None)
Quarter: 2009Q3

REPORT INFORMATION
  Report Type: 
  Country: None (occurrence: None)
  Receive Date: 20090922
  Receipt Date: 20090429
  Transmission Date: 20100115
  Serious: No
  Sender: FDA-Public Use
  Company Number: A0771123A

PATIENT
  Age: 70 Year
  Sex: Female

DRUGS (4)
  1. SEREVENT [Suspect]
     Indication: CHRONIC OBSTRUCTIVE PULMONARY DISEASE
     Dosage: 1PUFF TWICE PER DAY
     Route: 055
     Dates: start: 20000101
  2. ATROVENT [Concomitant]
  3. ESTRADERM [Concomitant]
  4. ALBUTEROL [Concomitant]

REACTIONS (7)
  - BURNING SENSATION [None]
  - LIP BLISTER [None]
  - LIP DISORDER [None]
  - LIP SWELLING [None]
  - ORAL PAIN [None]
  - OROPHARYNGEAL BLISTERING [None]
  - PAIN [None]
